FAERS Safety Report 17526033 (Version 1)
Quarter: 2020Q1

REPORT INFORMATION
  Report Type: Other
  Country: GB (occurrence: GB)
  Receive Date: 20200311
  Receipt Date: 20200311
  Transmission Date: 20200409
  Serious: Yes (Disabling)
  Sender: FDA-Public Use
  Company Number: GB-LUPIN PHARMACEUTICALS INC.-2020-01243

PATIENT
  Age: 20 Year
  Weight: 54 kg

DRUGS (1)
  1. MAEXENI 150/30 MICROGRAM FILM COATED TABLETS [Suspect]
     Active Substance: ETHINYL ESTRADIOL\LEVONORGESTREL
     Indication: HORMONAL CONTRACEPTION
     Dosage: 1 DOSAGE FORM, QD, 30/150 MICROGRAMS
     Route: 048
     Dates: start: 20200116, end: 20200130

REACTIONS (6)
  - Dry skin [Recovered/Resolved]
  - Rash [Recovered/Resolved]
  - Pharyngeal ulceration [Recovered/Resolved]
  - Swelling face [Recovered/Resolved]
  - Hypersensitivity [Recovered/Resolved]
  - Eyelid skin dryness [Recovered/Resolved]

NARRATIVE: CASE EVENT DATE: 20200116
